FAERS Safety Report 11718900 (Version 1)
Quarter: 2015Q4

REPORT INFORMATION
  Report Type: Spontaneous
  Country: US (occurrence: US)
  Receive Date: 20151109
  Receipt Date: 20151109
  Transmission Date: 20160304
  Serious: No
  Sender: FDA-Public Use
  Company Number: US-MISSION PHARMACAL COMPANY-1043953

PATIENT
  Age: 43 Year
  Sex: Female

DRUGS (1)
  1. THIOLA [Suspect]
     Active Substance: TIOPRONIN
     Indication: CYSTINURIA
     Route: 048
     Dates: start: 20150128

REACTIONS (7)
  - Contusion [Unknown]
  - Fatigue [Unknown]
  - Condition aggravated [Unknown]
  - Peripheral swelling [Unknown]
  - Disturbance in attention [Unknown]
  - Pain in extremity [Unknown]
  - Nausea [Unknown]
